FAERS Safety Report 6862818-5 (Version None)
Quarter: 2010Q3

REPORT INFORMATION
  Report Type: 
  Country: None (occurrence: None)
  Receive Date: 20100721
  Receipt Date: 20100714
  Transmission Date: 20110219
  Serious: Yes (Hospitalization)
  Sender: FDA-Public Use
  Company Number: A0849362A

PATIENT
  Age: 59 Year
  Sex: Male
  Weight: 92.7 kg

DRUGS (2)
  1. AVANDIA [Suspect]
     Route: 048
     Dates: start: 20040101, end: 20070601
  2. AVANDAMET [Suspect]
     Route: 048
     Dates: start: 20040101, end: 20070601

REACTIONS (2)
  - CARDIAC FAILURE CONGESTIVE [None]
  - MYOCARDIAL INFARCTION [None]
